FAERS Safety Report 18080587 (Version 5)
Quarter: 2020Q3

REPORT INFORMATION
  Report Type: Spontaneous
  Country: SK (occurrence: SK)
  Receive Date: 20200728
  Receipt Date: 20200817
  Transmission Date: 20201103
  Serious: Yes (Hospitalization, Other)
  Sender: FDA-Public Use
  Company Number: NVSC2020SK209064

PATIENT
  Age: 30 Year
  Sex: Female

DRUGS (12)
  1. FUROSEMIDE. [Suspect]
     Active Substance: FUROSEMIDE
     Dosage: 10 MG, Q12H
     Route: 048
  2. ALBUMIN [Suspect]
     Active Substance: ALBUMIN HUMAN
     Indication: HYPOALBUMINAEMIA
     Dosage: 100 MILLILITER, QD
     Route: 065
  3. MAGNESIUM LACTATE [Suspect]
     Active Substance: MAGNESIUM LACTATE
     Indication: PRODUCT USED FOR UNKNOWN INDICATION
     Dosage: 500 MG, Q8H
     Route: 048
  4. EPOETIN THETA [Concomitant]
     Active Substance: ERYTHROPOIETIN
     Indication: ANAEMIA
     Dosage: 2000 IU, QW
     Route: 058
  5. AMLODIPINE [Suspect]
     Active Substance: AMLODIPINE BESYLATE
     Indication: PRODUCT USED FOR UNKNOWN INDICATION
     Dosage: 5 MG, QD
     Route: 065
  6. AMLODIPINE [Suspect]
     Active Substance: AMLODIPINE BESYLATE
     Dosage: 5 MG, Q24H
     Route: 048
  7. NADROPARIN CALCIUM [Suspect]
     Active Substance: NADROPARIN CALCIUM
     Indication: PRODUCT USED FOR UNKNOWN INDICATION
     Dosage: 0.4 ML, Q24H
     Route: 058
  8. INSULIN [Suspect]
     Active Substance: INSULIN NOS
     Indication: TYPE 1 DIABETES MELLITUS
     Dosage: UNK
     Route: 058
  9. FUROSEMIDE. [Suspect]
     Active Substance: FUROSEMIDE
     Indication: ELECTROLYTE IMBALANCE
     Dosage: 10 MG
     Route: 042
  10. FUROSEMIDE. [Suspect]
     Active Substance: FUROSEMIDE
     Dosage: 10 MG, BID
     Route: 048
  11. MAGNESIUM LACTICUM [Suspect]
     Active Substance: MAGNESIUM LACTATE
     Indication: PRODUCT USED FOR UNKNOWN INDICATION
     Dosage: 500 MG, TID
     Route: 048
  12. METHYLDOPA. [Suspect]
     Active Substance: METHYLDOPA
     Indication: PRODUCT USED FOR UNKNOWN INDICATION
     Dosage: 250 MG, QID
     Route: 048

REACTIONS (7)
  - Hypertension [Unknown]
  - Disease progression [Not Recovered/Not Resolved]
  - Condition aggravated [Not Recovered/Not Resolved]
  - Exposure during pregnancy [Unknown]
  - Drug ineffective [Unknown]
  - Blood pressure increased [Unknown]
  - Tracheobronchitis [Recovered/Resolved]
